FAERS Safety Report 6917972-3 (Version None)
Quarter: 2010Q3

REPORT INFORMATION
  Report Type: 
  Country: None (occurrence: None)
  Receive Date: 20100810
  Receipt Date: 20100802
  Transmission Date: 20110219
  Serious: Yes (Hospitalization)
  Sender: FDA-Public Use
  Company Number: US-AMGEN-KDC428519

PATIENT
  Sex: Female

DRUGS (15)
  1. NEULASTA [Suspect]
     Indication: PRODUCT USED FOR UNKNOWN INDICATION
  2. IXABEPILONE [Suspect]
     Route: 042
     Dates: start: 20100423, end: 20100625
  3. CYCLOPHOSPHAMIDE [Suspect]
     Route: 042
     Dates: start: 20100114, end: 20100325
  4. DOXORUBICIN HCL [Suspect]
     Route: 042
     Dates: start: 20100114, end: 20100325
  5. ZOLOFT [Concomitant]
     Dates: start: 20100423
  6. ACTOS [Concomitant]
     Dates: start: 20040101
  7. ZOCOR [Concomitant]
     Dates: start: 20090101
  8. PERCOCET [Concomitant]
     Dates: start: 20100412
  9. PHENERGAN [Concomitant]
     Dates: start: 20100119
  10. HALCION [Concomitant]
  11. LUNESTA [Concomitant]
     Dates: start: 20080101
  12. CARAFATE [Concomitant]
  13. VICODIN [Concomitant]
  14. NAPROSYN [Concomitant]
  15. ZYRTEC [Concomitant]

REACTIONS (3)
  - BONE PAIN [None]
  - DYSPNOEA [None]
  - GASTROINTESTINAL HAEMORRHAGE [None]
